FAERS Safety Report 10300281 (Version 2)
Quarter: 2014Q4

REPORT INFORMATION
  Report Type: Spontaneous
  Country: IT (occurrence: IT)
  Receive Date: 20140712
  Receipt Date: 20141020
  Transmission Date: 20150528
  Serious: Yes (Life-Threatening)
  Sender: FDA-Public Use
  Company Number: PHHY2014IT084158

PATIENT
  Age: 79 Year
  Sex: Female

DRUGS (10)
  1. METFORMIN CLORIDRATE [Suspect]
     Active Substance: METFORMIN HYDROCHLORIDE
     Indication: DIABETES MELLITUS
     Dosage: 1500 MG, QD
     Route: 048
     Dates: start: 20140101, end: 20140616
  2. LANOXIN [Concomitant]
     Active Substance: DIGOXIN
     Dates: start: 20100101, end: 20140616
  3. SINTROM [Concomitant]
     Active Substance: ACENOCOUMAROL
     Indication: ATRIAL FIBRILLATION
     Dates: start: 20100101, end: 20140616
  4. UNIPRIL [Concomitant]
     Active Substance: RAMIPRIL
     Indication: HYPERTENSIVE HEART DISEASE
     Dosage: 10 MG, UNK
     Route: 048
     Dates: start: 20100101, end: 20140616
  5. NORVASC [Concomitant]
     Active Substance: AMLODIPINE BESYLATE
     Dates: start: 20100101, end: 20140616
  6. LANTUS [Suspect]
     Active Substance: INSULIN GLARGINE
     Indication: DIABETES MELLITUS
     Dosage: 22 IU, QD
     Route: 058
     Dates: start: 20130101, end: 20140616
  7. APIDRA [Suspect]
     Active Substance: INSULIN GLULISINE
     Indication: DIABETES MELLITUS
     Dosage: 36 IU, QD
     Route: 058
     Dates: start: 20130101, end: 20140616
  8. LASIX [Concomitant]
     Active Substance: FUROSEMIDE
  9. PARIET [Concomitant]
     Active Substance: RABEPRAZOLE SODIUM
  10. CRESTOR [Concomitant]
     Active Substance: ROSUVASTATIN CALCIUM
     Dates: start: 20100101, end: 20140616

REACTIONS (1)
  - Hypoglycaemic coma [Recovered/Resolved]

NARRATIVE: CASE EVENT DATE: 20140616
